FAERS Safety Report 4694666-9 (Version None)
Quarter: 2005Q2

REPORT INFORMATION
  Report Type: 
  Country: None (occurrence: None)
  Receive Date: 20050620
  Receipt Date: 20040729
  Transmission Date: 20051028
  Serious: Yes (Hospitalization)
  Sender: FDA-Public Use
  Company Number: FR-GLAXOSMITHKLINE-B0341051A

PATIENT
  Age: 52 Year
  Sex: Female

DRUGS (21)
  1. ZOVIRAX [Suspect]
     Indication: ILL-DEFINED DISORDER
     Route: 048
     Dates: start: 20040512, end: 20040527
  2. ZELITREX [Suspect]
     Indication: ILL-DEFINED DISORDER
     Dosage: 1000MG PER DAY
     Route: 048
     Dates: start: 20040527, end: 20040530
  3. FUNGIZONE [Suspect]
     Route: 048
     Dates: start: 20040503, end: 20040531
  4. FUNGIZONE [Suspect]
     Dosage: 3SP PER DAY
     Route: 048
     Dates: start: 20040507, end: 20040531
  5. OROKEN [Suspect]
     Dosage: 2UNIT PER DAY
     Route: 048
     Dates: start: 20040527, end: 20040529
  6. LEXOMIL [Suspect]
     Dosage: .25UNIT PER DAY
     Route: 048
     Dates: start: 20040521, end: 20040604
  7. VANCOMYCIN [Suspect]
     Route: 042
     Dates: start: 20040501, end: 20040527
  8. TOPALGIC ( FRANCE ) [Concomitant]
     Route: 065
  9. LASILIX [Concomitant]
     Route: 065
  10. ROCEPHIN [Concomitant]
     Route: 065
  11. ZYLORIC [Concomitant]
     Route: 048
  12. PRIMAXIN [Concomitant]
     Route: 065
  13. OMEPRAZOLE [Concomitant]
  14. SOLU-MEDROL [Concomitant]
  15. POLARAMINE [Concomitant]
  16. PLITICAN [Concomitant]
  17. TAVANIC [Concomitant]
  18. KYTRIL [Concomitant]
  19. ZAVEDOS [Concomitant]
  20. ARACYTINE [Concomitant]
     Route: 042
  21. ATARAX [Concomitant]

REACTIONS (7)
  - DERMATITIS EXFOLIATIVE [None]
  - ERYTHEMA [None]
  - INSOMNIA [None]
  - PRURITUS [None]
  - PYREXIA [None]
  - RASH PAPULAR [None]
  - SKIN INFLAMMATION [None]
